FAERS Safety Report 5469630-2 (Version None)
Quarter: 2007Q3

REPORT INFORMATION
  Report Type: 
  Country: None (occurrence: None)
  Receive Date: 20070925
  Receipt Date: 20070925
  Transmission Date: 20080115
  Serious: Yes (Hospitalization, Other)
  Sender: FDA-Public Use
  Company Number: None

PATIENT
  Age: 45 Year
  Sex: Male
  Weight: 88.4514 kg

DRUGS (1)
  1. CHANTIX [Suspect]

REACTIONS (2)
  - CARDIAC DISORDER [None]
  - DEPRESSION [None]
